FAERS Safety Report 9100220 (Version 2)
Quarter: 2013Q2

REPORT INFORMATION
  Report Type: Report from Study
  Country: US (occurrence: US)
  Receive Date: 20130215
  Receipt Date: 20130424
  Transmission Date: 20140414
  Serious: Yes (Hospitalization)
  Sender: FDA-Public Use
  Company Number: US-ROCHE-1150804

PATIENT
  Age: 48 Year
  Sex: Female
  Weight: 70.37 kg

DRUGS (7)
  1. BEVACIZUMAB [Suspect]
     Indication: COLORECTAL CANCER
     Route: 042
     Dates: start: 20120214, end: 201206
  2. BEVACIZUMAB [Suspect]
     Route: 042
     Dates: start: 20120911
  3. 5-FU [Concomitant]
     Indication: COLORECTAL CANCER
     Route: 042
     Dates: start: 20120214
  4. LEUCOVORIN [Concomitant]
     Indication: UNEVALUABLE EVENT
     Route: 042
  5. IRINOTECAN [Concomitant]
     Route: 042
  6. ZOFRAN [Concomitant]
     Route: 048
  7. PRILOSEC [Concomitant]
     Route: 065

REACTIONS (7)
  - Ovarian neoplasm [Recovered/Resolved]
  - Ileostomy [Recovered/Resolved]
  - Obstruction [Recovered/Resolved]
  - Back pain [Not Recovered/Not Resolved]
  - Epistaxis [Not Recovered/Not Resolved]
  - Oesophageal disorder [Not Recovered/Not Resolved]
  - Vomiting [Recovered/Resolved]
